FAERS Safety Report 16594820 (Version 2)
Quarter: 2019Q3

REPORT INFORMATION
  Report Type: Spontaneous
  Country: CO (occurrence: CO)
  Receive Date: 20190718
  Receipt Date: 20190723
  Transmission Date: 20191004
  Serious: Yes (Hospitalization)
  Sender: FDA-Public Use
  Company Number: CO-BIOMARINAP-CO-2019-124747

PATIENT
  Age: 13 Year
  Sex: Male
  Weight: 28 kg

DRUGS (1)
  1. VIMIZIM [Suspect]
     Active Substance: ELOSULFASE ALFA
     Indication: MUCOPOLYSACCHARIDOSIS
     Dosage: 55 MILLIGRAM, QW
     Route: 042
     Dates: start: 20160303

REACTIONS (4)
  - Hip surgery [Recovering/Resolving]
  - Knee operation [Recovering/Resolving]
  - Ankle operation [Recovering/Resolving]
  - Pain [Unknown]

NARRATIVE: CASE EVENT DATE: 20190715
